FAERS Safety Report 6282495-4 (Version None)
Quarter: 2009Q3

REPORT INFORMATION
  Report Type: 
  Country: None (occurrence: None)
  Receive Date: 20090721
  Receipt Date: 20090721
  Transmission Date: 20100115
  Serious: Yes (Other)
  Sender: FDA-Public Use
  Company Number: None

PATIENT
  Age: 47 Year
  Sex: Male
  Weight: 97.5234 kg

DRUGS (11)
  1. PRIMIDONE [Suspect]
     Indication: ESSENTIAL TREMOR
     Dosage: 25 MG 1/DAY PO
     Route: 048
     Dates: start: 20090115, end: 20090630
  2. ALBUTEROL [Concomitant]
  3. SYNBICORT INHALER [Concomitant]
  4. SINGULAIR [Concomitant]
  5. ALLEGRA [Concomitant]
  6. ATACAND [Concomitant]
  7. MULTIVITAMINS -VARIOUS BRANDS- [Concomitant]
  8. CALCIUM [Concomitant]
  9. MAGNESIUM [Concomitant]
  10. ZINC [Concomitant]
  11. VITAMIN D SUPPLEMENTS [Concomitant]

REACTIONS (2)
  - HYPOGAMMAGLOBULINAEMIA [None]
  - PNEUMONIA [None]
